FAERS Safety Report 11058482 (Version 1)
Quarter: 2015Q2

REPORT INFORMATION
  Report Type: Report from Study
  Country: US (occurrence: None)
  Receive Date: 20150420
  Receipt Date: 20150420
  Transmission Date: 20150821
  Serious: No
  Sender: FDA-Public Use
  Company Number: AEGR001087

PATIENT
  Age: 43 Year
  Sex: Male
  Weight: 126.5 kg

DRUGS (12)
  1. METOPROLOL (METOPROLOL TARTRATE) [Concomitant]
     Active Substance: METOPROLOL TARTRATE
  2. NITROSTAT (GLYCERYL TRINITRATE) [Concomitant]
  3. CLOPIDOGREL (CLOPIDOGREL HYDROCHLORIDE) [Concomitant]
  4. PERCOCET (OXYCODONE HYDROCHLORIDE, PARACETAMOL) [Concomitant]
  5. ISOSORBIDE (ISOSORBIDE DINITRATE) [Concomitant]
  6. RANITIDINE [Concomitant]
     Active Substance: RANITIDINE\RANITIDINE HYDROCHLORIDE
  7. VITAMIN E (TOCOPHERYL ACETATE) [Concomitant]
  8. ROSUVASTATIN [Concomitant]
     Active Substance: ROSUVASTATIN
  9. OMEGA (CONVALLARIA MAJLIS, CRATAEGUS LAEVIGATA, PROXYPHYLLINE) [Concomitant]
  10. JUXTAPID [Suspect]
     Active Substance: LOMITAPIDE MESYLATE
     Indication: TYPE IIA HYPERLIPIDAEMIA
     Dosage: 5 MG, QD, ORAL
     Route: 048
     Dates: start: 20141212
  11. ASPIRIN. [Concomitant]
     Active Substance: ASPIRIN
  12. ALPROZOLAM [Concomitant]
     Active Substance: ALPRAZOLAM

REACTIONS (13)
  - Dizziness [None]
  - Constipation [None]
  - Food poisoning [None]
  - Dehydration [None]
  - Gastroenteritis viral [None]
  - Nausea [None]
  - Diarrhoea [None]
  - Hypersensitivity [None]
  - Pyrexia [None]
  - Abdominal discomfort [None]
  - Influenza [None]
  - Abdominal pain upper [None]
  - Chills [None]

NARRATIVE: CASE EVENT DATE: 20141212
